FAERS Safety Report 6963900-4 (Version None)
Quarter: 2010Q3

REPORT INFORMATION
  Report Type: 
  Country: None (occurrence: None)
  Receive Date: 20100831
  Receipt Date: 20100813
  Transmission Date: 20110219
  Serious: Yes (Other)
  Sender: FDA-Public Use
  Company Number: GER/UKI/10/0015232

PATIENT
  Age: 29 Year
  Sex: Male
  Weight: 70 kg

DRUGS (1)
  1. CIPROFLOXACIN [Suspect]
     Indication: COUGH
     Dosage: 500 MG, 2 IN 1 D, ORAL
     Route: 048
     Dates: start: 20100713, end: 20100717

REACTIONS (2)
  - POLYDIPSIA [None]
  - RENAL IMPAIRMENT [None]
